FAERS Safety Report 5135632-9 (Version None)
Quarter: 2006Q4

REPORT INFORMATION
  Report Type: 
  Country: None (occurrence: None)
  Receive Date: 20061026
  Receipt Date: 20061016
  Transmission Date: 20070319
  Serious: Yes (Hospitalization)
  Sender: FDA-Public Use
  Company Number: 2006PK02122

PATIENT
  Age: 92 Year
  Sex: Male
  Weight: 77 kg

DRUGS (5)
  1. ATACAND [Suspect]
     Indication: LEFT VENTRICULAR FAILURE
     Route: 048
     Dates: start: 20060317, end: 20060828
  2. TORSEMIDE [Suspect]
  3. CARVEDIOL [Concomitant]
  4. TORSEMIDE [Concomitant]
     Dates: end: 20060828
  5. RAMIPRIL [Concomitant]

REACTIONS (2)
  - DEHYDRATION [None]
  - HYPOTENSION [None]
